FAERS Safety Report 8109704-0 (Version None)
Quarter: 2012Q1

REPORT INFORMATION
  Report Type: 
  Country: None (occurrence: None)
  Receive Date: 20120202
  Receipt Date: 20120119
  Transmission Date: 20120608
  Serious: Yes (Hospitalization)
  Sender: FDA-Public Use
  Company Number: AU-WATSON-2011-15731

PATIENT
  Sex: Female

DRUGS (2)
  1. EXEMESTANE [Suspect]
     Dosage: 25MG, UNK
     Route: 048
     Dates: start: 20070725, end: 20110831
  2. TRELSTAR [Suspect]
     Indication: BREAST CANCER
     Dosage: 3.75MG, UNK
     Route: 030
     Dates: start: 20070326, end: 20110831

REACTIONS (1)
  - FRACTURE [None]
